FAERS Safety Report 5479037-X (Version None)
Quarter: 2007Q4

REPORT INFORMATION
  Report Type: 
  Country: None (occurrence: None)
  Receive Date: 20071006
  Receipt Date: 20070925
  Transmission Date: 20080405
  Serious: Yes (Other)
  Sender: FDA-Public Use
  Company Number: US-PFIZER INC-2007080939

PATIENT
  Sex: Female
  Weight: 65.454 kg

DRUGS (1)
  1. CHANTIX [Suspect]
     Dates: start: 20070801, end: 20070901

REACTIONS (5)
  - CHAPPED LIPS [None]
  - EYE SWELLING [None]
  - FACE OEDEMA [None]
  - LIP SWELLING [None]
  - PRURITUS [None]
